FAERS Safety Report 17170396 (Version 1)
Quarter: 2019Q4

REPORT INFORMATION
  Report Type: Spontaneous
  Country: BE (occurrence: BE)
  Receive Date: 20191218
  Receipt Date: 20191218
  Transmission Date: 20200122
  Serious: Yes (Hospitalization, Other)
  Sender: FDA-Public Use
  Company Number: BE-CHEPLA-MYERS SQUIBB COMPANY-BMS-2016-039454

PATIENT
  Age: 61 Year
  Sex: Male

DRUGS (23)
  1. RITUXIMAB (R-DHAP) [Suspect]
     Active Substance: RITUXIMAB
     Indication: NON-HODGKIN^S LYMPHOMA
     Dosage: 1 CYCLE
  2. BIS-CHLOROETHYL NITROSOUREA (CARMUSTINE) (FULL DOSE BEAM) [Suspect]
     Active Substance: CARMUSTINE
     Indication: NON-HODGKIN^S LYMPHOMA
     Dosage: 300 MG/M2 ON DAY 1?CYCLIC
  3. RITUXIMAB (R-CHOP) [Suspect]
     Active Substance: RITUXIMAB
     Indication: NON-HODGKIN^S LYMPHOMA
  4. RITUXIMAB (R-ICE) [Suspect]
     Active Substance: RITUXIMAB
     Indication: NON-HODGKIN^S LYMPHOMA
  5. CYTARABINE (LOW-DOSE BEAM) [Suspect]
     Active Substance: CYTARABINE
     Indication: NON-HODGKIN^S LYMPHOMA
     Dosage: 2 X 100 MG/M2 ON DAY 2,3,4 AND 5?CYCLIC
  6. MELPHALAN (LOW-DOSE BEAM) [Suspect]
     Active Substance: MELPHALAN
     Indication: NON-HODGKIN^S LYMPHOMA
     Dosage: 30 MG/M2 ON DAY 6?CYCLIC
  7. CYTARABINE (R-DHAP) [Suspect]
     Active Substance: CYTARABINE
     Indication: NON-HODGKIN^S LYMPHOMA
     Dosage: 1 CYCLE
  8. CARBOPLATIN (R-ICE) [Suspect]
     Active Substance: CARBOPLATIN
     Indication: NON-HODGKIN^S LYMPHOMA
  9. CYCLOPHOSPHAMIDE. [Suspect]
     Active Substance: CYCLOPHOSPHAMIDE
     Indication: HAEMATOPOIETIC STEM CELL MOBILISATION
     Dates: start: 201308
  10. CYTARABINE (FULL DOSE BEAM) [Suspect]
     Active Substance: CYTARABINE
     Indication: NON-HODGKIN^S LYMPHOMA
     Dosage: 2 X 200 MG/M2 DAY 2-5,?CYCLIC
  11. CYCLOPHOSPHAMIDE (R-CHOP) [Suspect]
     Active Substance: CYCLOPHOSPHAMIDE
     Indication: NON-HODGKIN^S LYMPHOMA
  12. CISPLATIN (R-DHAP) [Suspect]
     Active Substance: CISPLATIN
     Indication: NON-HODGKIN^S LYMPHOMA
     Dosage: 1 CYCLE
  13. ETOPOSIDE (FULL DOSE BEAM) [Suspect]
     Active Substance: ETOPOSIDE
     Indication: NON-HODGKIN^S LYMPHOMA
     Dosage: 200 MG/M2 DAY 2-5,?CYCLIC
  14. GANCICLOVIR. [Suspect]
     Active Substance: GANCICLOVIR
     Indication: CYTOMEGALOVIRUS TEST POSITIVE
  15. ETOPOSIDE (LOW-DOSE BEAM) [Suspect]
     Active Substance: ETOPOSIDE
     Indication: NON-HODGKIN^S LYMPHOMA
     Dosage: 15 MG/M2 ON DAY 2,3,4 AND 5?CYCLIC
  16. DOXORUBICIN (R-CHOP) [Suspect]
     Active Substance: DOXORUBICIN
     Indication: NON-HODGKIN^S LYMPHOMA
  17. PREDNISONE (R-CHOP) [Suspect]
     Active Substance: PREDNISONE
     Indication: NON-HODGKIN^S LYMPHOMA
  18. DEXAMETHASONE (R-DHAP) [Suspect]
     Active Substance: DEXAMETHASONE
     Indication: NON-HODGKIN^S LYMPHOMA
     Dosage: 1 CYCLE
  19. IFOSFAMIDE (R-ICE) [Suspect]
     Active Substance: IFOSFAMIDE
     Indication: NON-HODGKIN^S LYMPHOMA
  20. BIS-CHLOROETHYL NITROSOUREA (CARMUSTINE) (LOW-DOSE BEAM) [Suspect]
     Active Substance: CARMUSTINE
     Indication: NON-HODGKIN^S LYMPHOMA
     Dosage: 60 MG/M2 ON DAY 1?CYCLIC
  21. ETOPOSIDE (R-ICE) [Suspect]
     Active Substance: ETOPOSIDE
     Indication: NON-HODGKIN^S LYMPHOMA
  22. VINCRISTINE (R-CHOP) [Suspect]
     Active Substance: VINCRISTINE
     Indication: NON-HODGKIN^S LYMPHOMA
  23. MELPHALAN (FULL DOSE BEAM) [Suspect]
     Active Substance: MELPHALAN
     Indication: NON-HODGKIN^S LYMPHOMA
     Dosage: 140 MG/M2 DAY 6?CYCLIC

REACTIONS (2)
  - Kaposi^s sarcoma [Recovered/Resolved]
  - Human herpesvirus 8 infection [Unknown]

NARRATIVE: CASE EVENT DATE: 2013
